FAERS Safety Report 9814368 (Version 1)
Quarter: 2014Q1

REPORT INFORMATION
  Report Type: Spontaneous
  Country: GB (occurrence: GB)
  Receive Date: 20140113
  Receipt Date: 20140113
  Transmission Date: 20141002
  Serious: Yes (Hospitalization, Disabling, Other)
  Sender: FDA-Public Use
  Company Number: GB-TEVA-454630ISR

PATIENT
  Age: 66 Year
  Sex: Male
  Weight: 76 kg

DRUGS (4)
  1. CLARITHROMYCIN [Suspect]
     Indication: MYCOBACTERIUM AVIUM COMPLEX INFECTION
     Dosage: 1000 MILLIGRAM DAILY; CLARITHROMYCIN - 500X 2
     Route: 048
     Dates: start: 20130722, end: 20131114
  2. ETHAMBUTOL [Suspect]
     Indication: MYCOBACTERIUM AVIUM COMPLEX INFECTION
     Dosage: 1200 MILLIGRAM DAILY; ETHAMBUTOL - 1200X1
     Route: 048
     Dates: start: 20130722, end: 20131114
  3. GENTAMICIN [Suspect]
     Indication: MYCOBACTERIUM AVIUM COMPLEX INFECTION
     Dosage: 240 MILLIGRAM DAILY; GENTAMICIN 80X3 NEBULISED
     Route: 048
     Dates: start: 20130722, end: 20131114
  4. CO-TRIMOXAZOLE [Suspect]
     Indication: MYCOBACTERIUM AVIUM COMPLEX INFECTION
     Dosage: 960 MILLIGRAM DAILY; COTRIMOXAZOLE - 480X2
     Route: 048
     Dates: start: 20130722, end: 20131114

REACTIONS (7)
  - Vertigo [Recovered/Resolved with Sequelae]
  - Dizziness [Recovered/Resolved with Sequelae]
  - Headache [Recovered/Resolved with Sequelae]
  - Ear discomfort [Recovered/Resolved with Sequelae]
  - Tinnitus [Recovered/Resolved with Sequelae]
  - Palpitations [Recovered/Resolved]
  - Nausea [Recovered/Resolved with Sequelae]
